FAERS Safety Report 20961746 (Version 3)
Quarter: 2022Q3

REPORT INFORMATION
  Report Type: Spontaneous
  Country: DE (occurrence: DE)
  Receive Date: 20220615
  Receipt Date: 20220722
  Transmission Date: 20221026
  Serious: Yes (Hospitalization)
  Sender: FDA-Public Use
  Company Number: DE-NOVARTISPH-NVSC2022DE135472

PATIENT
  Age: 63 Year
  Sex: Male

DRUGS (9)
  1. RITUXIMAB [Suspect]
     Active Substance: RITUXIMAB
     Indication: B-cell lymphoma
     Dosage: 375 MG/M2 (FREQUENCY : DAY 1 OF EACH 21- DAY CYCLE FOR UPTO 3 CYCLES)
     Route: 042
  2. RITUXIMAB [Suspect]
     Active Substance: RITUXIMAB
     Dosage: FREQUENCY : DAY 1 OF EACH 21- DAY CYCLE FOR UPTO 3 CYCLES
     Route: 042
     Dates: start: 20220520
  3. ETOPOSIDE [Suspect]
     Active Substance: ETOPOSIDE
     Indication: B-cell lymphoma
     Dosage: 100 MG/M2
     Route: 042
  4. ETOPOSIDE [Suspect]
     Active Substance: ETOPOSIDE
     Dosage: 1000 MG/M2, QD
     Route: 042
     Dates: start: 20220520
  5. CARBOPLATIN [Suspect]
     Active Substance: CARBOPLATIN
     Indication: B-cell lymphoma
     Dosage: 5 MAX 800 MG ON CYCLE DAY 2
     Route: 042
     Dates: start: 20220521
  6. POLATUZUMAB VEDOTIN [Suspect]
     Active Substance: POLATUZUMAB VEDOTIN
     Indication: B-cell lymphoma
     Dosage: 1.8 MG/KG (FREQUENCY : DAY 1 OF EACH 21- DAY CYCLE FOR UPTO 3 CYCLES)
     Route: 042
  7. POLATUZUMAB VEDOTIN [Suspect]
     Active Substance: POLATUZUMAB VEDOTIN
     Dosage: FREQUENCY : DAY 1 OF EACH 21- DAY CYCLE FOR UPTO 3 CYCLES.
     Route: 042
     Dates: start: 20220520
  8. IFOSFAMIDE [Suspect]
     Active Substance: IFOSFAMIDE
     Indication: B-cell lymphoma
     Dosage: 5000 MG/M2
     Route: 042
  9. IFOSFAMIDE [Suspect]
     Active Substance: IFOSFAMIDE
     Dosage: 24 HOURS PERIOD STARTING ON CYCLE DAY 2
     Route: 042
     Dates: start: 20220521

REACTIONS (1)
  - Febrile neutropenia [Recovered/Resolved]

NARRATIVE: CASE EVENT DATE: 20220531
